FAERS Safety Report 5065778-5 (Version None)
Quarter: 2006Q3

REPORT INFORMATION
  Report Type: 
  Country: None (occurrence: None)
  Receive Date: 20060731
  Receipt Date: 20060720
  Transmission Date: 20061208
  Serious: Yes (Hospitalization)
  Sender: FDA-Public Use
  Company Number: US-ROCHE-456509

PATIENT
  Age: 51 Year
  Sex: Male

DRUGS (8)
  1. PEGASYS [Suspect]
     Dosage: STRENGTH REPORTED AS 180 MCG/0.5 ML.
     Route: 058
     Dates: start: 20060401
  2. RIBAVIRIN [Suspect]
     Route: 048
     Dates: start: 20060401
  3. RIBAVIRIN [Suspect]
     Dosage: DURATION REPORTED: ONE DAY.
     Route: 048
  4. RIBAVIRIN [Suspect]
     Route: 048
  5. PROCRIT [Concomitant]
     Dosage: IN JULY 2006, DOSAGE REGIMEN WAS INCREASED TO 60 MG WEEKLY DURING HOSPITALISATION.
     Dates: start: 20060515
  6. VIREAD [Concomitant]
     Dates: start: 19890615
  7. EPZICOM [Concomitant]
     Dates: start: 19890615
  8. VIRAMUNE [Concomitant]
     Dates: start: 19890615

REACTIONS (4)
  - DEHYDRATION [None]
  - DIARRHOEA [None]
  - FATIGUE [None]
  - VOMITING [None]
